FAERS Safety Report 16718086 (Version 2)
Quarter: 2019Q3

REPORT INFORMATION
  Report Type: Spontaneous
  Country: RU (occurrence: RU)
  Receive Date: 20190819
  Receipt Date: 20190828
  Transmission Date: 20191005
  Serious: Yes (Other)
  Sender: FDA-Public Use
  Company Number: RU-009507513-1908RUS006794

PATIENT
  Age: 34 Year
  Weight: 50 kg

DRUGS (3)
  1. ISENTRESS [Suspect]
     Active Substance: RALTEGRAVIR POTASSIUM
     Indication: HIV INFECTION
     Dosage: 800/800 MG PER OS (DAILY DOSE) WICH IS 400/400 MG (SIGLE DOSE)
     Route: 048
     Dates: start: 20190315, end: 20190412
  2. TENOFOVIR [Concomitant]
     Active Substance: TENOFOVIR
     Indication: HIV INFECTION
     Dosage: ORAL
     Route: 048
     Dates: end: 20190412
  3. LAMIVUDINE. [Concomitant]
     Active Substance: LAMIVUDINE
     Indication: HIV INFECTION
     Dosage: ORAL
     Route: 048
     Dates: end: 20190412

REACTIONS (1)
  - Neurotoxicity [Recovering/Resolving]

NARRATIVE: CASE EVENT DATE: 20190315
